FAERS Safety Report 10218428 (Version 1)
Quarter: 2014Q2

REPORT INFORMATION
  Report Type: Spontaneous
  Country: BR (occurrence: BR)
  Receive Date: 20140605
  Receipt Date: 20140605
  Transmission Date: 20141212
  Serious: Yes (Other)
  Sender: FDA-Public Use
  Company Number: BR-ROCHE-1410294

PATIENT
  Age: 43 Year
  Sex: Female
  Weight: 71.5 kg

DRUGS (8)
  1. HERCEPTIN [Suspect]
     Indication: BREAST CANCER
     Route: 042
     Dates: start: 20130829, end: 20130829
  2. ONDANSETRON [Interacting]
     Indication: PREMEDICATION
     Route: 042
     Dates: start: 20130829, end: 20130829
  3. TRAMADOL [Interacting]
     Indication: ANALGESIC THERAPY
     Route: 065
     Dates: start: 20130829, end: 20130927
  4. RANITIDINE [Concomitant]
     Dosage: PRE CHEMOTHERAPY
     Route: 042
     Dates: start: 20130829, end: 20130829
  5. RANITIDINE [Concomitant]
     Dosage: ANTI ULCER
     Route: 048
     Dates: start: 20130829, end: 20131125
  6. DEXAMETHASONE [Concomitant]
     Route: 042
     Dates: start: 20130829, end: 20130829
  7. PERJETA [Concomitant]
     Indication: BREAST CANCER
     Route: 042
     Dates: start: 20130829, end: 20130829
  8. PARACETAMOL [Concomitant]
     Route: 048
     Dates: start: 20130829, end: 20130927

REACTIONS (3)
  - Tremor [Recovered/Resolved]
  - Chills [Recovered/Resolved]
  - Drug interaction [Unknown]
